FAERS Safety Report 10004903 (Version 2)
Quarter: 2014Q2

REPORT INFORMATION
  Report Type: Report from Study
  Country: FR (occurrence: FR)
  Receive Date: 20140312
  Receipt Date: 20140408
  Transmission Date: 20141212
  Serious: Yes (Disabling, Other)
  Sender: FDA-Public Use
  Company Number: PHHY2014FR029186

PATIENT
  Age: 74 Year
  Sex: Female
  Weight: 45 kg

DRUGS (2)
  1. ACLASTA/ZOLEDRONATE [Suspect]
     Indication: OSTEOPOROTIC FRACTURE
     Dosage: 5 MG, UNK
     Route: 042
     Dates: start: 20130228
  2. ADARTREL [Concomitant]
     Dates: start: 2008

REACTIONS (4)
  - Breast cancer recurrent [Not Recovered/Not Resolved]
  - Metastases to bone [Not Recovered/Not Resolved]
  - Pathological fracture [Unknown]
  - Rib fracture [Unknown]
